FAERS Safety Report 15674516 (Version 1)
Quarter: 2018Q4

REPORT INFORMATION
  Report Type: Spontaneous
  Country: US (occurrence: US)
  Receive Date: 20181130
  Receipt Date: 20181130
  Transmission Date: 20190205
  Serious: No
  Sender: FDA-Public Use
  Company Number: US-ASTRAZENECA-2018SF50152

PATIENT
  Sex: Male
  Weight: 88.5 kg

DRUGS (3)
  1. AMIODARONE [Concomitant]
     Active Substance: AMIODARONE
     Indication: ARRHYTHMIA
     Route: 048
     Dates: start: 2016
  2. CALQUENCE [Suspect]
     Active Substance: ACALABRUTINIB
     Indication: MANTLE CELL LYMPHOMA
     Route: 048
     Dates: start: 201810
  3. TAGAMET [Concomitant]
     Active Substance: CIMETIDINE
     Indication: ABDOMINAL DISCOMFORT
     Dosage: 200.0MG AS REQUIRED
     Route: 048

REACTIONS (3)
  - Blood urine present [Unknown]
  - Headache [Unknown]
  - Sinusitis [Unknown]
